FAERS Safety Report 8736624 (Version 2)
Quarter: 2012Q4

REPORT INFORMATION
  Report Type: Report from Study
  Country: US (occurrence: US)
  Receive Date: 20120822
  Receipt Date: 20121008
  Transmission Date: 20130627
  Serious: Yes (Hospitalization)
  Sender: FDA-Public Use
  Company Number: US-CELGENEUS-163-21880-12072888

PATIENT
  Age: 51 Year
  Sex: Female
  Weight: 72 kg

DRUGS (26)
  1. REVLIMID [Suspect]
     Indication: ACUTE MYELOID LEUKEMIA
     Dosage: 5 Milligram
     Route: 048
     Dates: start: 20120705, end: 20120712
  2. VALTREX [Concomitant]
     Indication: ANTIVIRAL PROPHYLAXIS
     Dosage: 500 Milligram
     Route: 048
     Dates: start: 20120201
  3. POSACONAZOLE [Concomitant]
     Indication: PROPHYLAXIS
     Route: 065
  4. BACTRIM [Concomitant]
     Indication: PROPHYLAXIS
     Route: 065
  5. MAGNESIUM OXIDE [Concomitant]
     Indication: SUPPLEMENTATION THERAPY
     Route: 041
     Dates: start: 20120430
  6. MAGNESIUM OXIDE [Concomitant]
     Dosage: 400 Milligram
     Route: 048
  7. ONDANSETRON [Concomitant]
     Indication: NAUSEA
     Dosage: 8 Milligram
     Route: 048
     Dates: start: 20111207
  8. PROCHLORPERAZINE [Concomitant]
     Indication: NAUSEA
     Dosage: 10 Milligram
     Route: 048
     Dates: start: 20120212
  9. TETRAHYDROZOLINE HCL [Concomitant]
     Indication: DRY EYES
     Dosage: 2 IU (International Unit)
     Route: 047
     Dates: start: 20120426
  10. OXYCODONE [Concomitant]
     Indication: PAIN
     Dosage: 5 Milligram
     Route: 048
     Dates: start: 20111202
  11. TRIAMCINOLONE [Concomitant]
     Indication: RASH
     Dosage: .1 Percent
     Route: 065
     Dates: start: 20120401
  12. FLUCONAZOLE [Concomitant]
     Indication: ANTIFUNGAL PROPHYLAXIS
     Dosage: 400 Milligram
     Route: 048
     Dates: start: 20111212, end: 20120712
  13. TRIMETHOPRIM-SULFAMETHOXAZOLE [Concomitant]
     Indication: ANTIBACTERIAL PROPHYLAXIS
     Dosage: 160-800mg
     Route: 048
     Dates: start: 20120420
  14. PRILOSEC [Concomitant]
     Indication: GASTROESOPHAGEAL REFLUX PROPHYLAXIS
     Dosage: 20 Milligram
     Route: 048
     Dates: start: 20120115
  15. ATIVAN [Concomitant]
     Indication: NAUSEA
     Dosage: .5 Milligram
     Route: 048
     Dates: start: 20120501
  16. SENNOSIDES [Concomitant]
     Indication: CONSTIPATION
     Dosage: 34.4 Milligram
     Route: 048
     Dates: start: 20120429
  17. DOCUSATE [Concomitant]
     Indication: CONSTIPATION
     Dosage: 200 Milligram
     Route: 048
     Dates: start: 20120429
  18. CELEXA [Concomitant]
     Indication: DEPRESSION
     Dosage: 30 Milligram
     Route: 048
     Dates: start: 20120429
  19. VALCYTE [Concomitant]
     Indication: CYTOMEGALOVIRUS INFECTION REACTIVATION
     Route: 065
  20. VALGANCICLOVIR [Concomitant]
     Indication: DRUG USE FOR UNKNOWN INDICATION
     Route: 065
  21. FLAGYL [Concomitant]
     Indication: DRUG USE FOR UNKNOWN INDICATION
     Route: 065
  22. CIPRO [Concomitant]
     Indication: DRUG USE FOR UNKNOWN INDICATION
     Route: 065
  23. PREDNISONE [Concomitant]
     Indication: DRUG USE FOR UNKNOWN INDICATION
     Dosage: 70 Milligram
     Route: 048
  24. PREDNISONE [Concomitant]
     Dosage: 20 Milligram
     Route: 048
     Dates: start: 20120914
  25. BUDESONIDE [Concomitant]
     Indication: DRUG USE FOR UNKNOWN INDICATION
     Route: 065
  26. INSULIN [Concomitant]
     Indication: HYPERGLYCEMIA STEROID-INDUCED
     Dosage: Sliding scale
     Route: 065
     Dates: start: 201209

REACTIONS (6)
  - Graft versus host disease [Unknown]
  - Blood alkaline phosphatase increased [Recovered/Resolved]
  - Alanine aminotransferase increased [Recovering/Resolving]
  - Aspartate aminotransferase increased [Recovered/Resolved]
  - Neutrophil count decreased [Unknown]
  - Pyrexia [Recovered/Resolved]
